FAERS Safety Report 5277364-2 (Version None)
Quarter: 2007Q1

REPORT INFORMATION
  Report Type: 
  Country: None (occurrence: None)
  Receive Date: 20070327
  Receipt Date: 20070315
  Transmission Date: 20070707
  Serious: Yes (Life-Threatening)
  Sender: FDA-Public Use
  Company Number: HQWYE952316MAR07

PATIENT
  Age: 48 Year
  Sex: Female

DRUGS (4)
  1. ANAGASTRA [Suspect]
     Indication: PEPTIC ULCER
     Route: 042
     Dates: start: 20061120, end: 20061230
  2. VALPROIC ACID [Suspect]
     Indication: GRAND MAL CONVULSION
     Dosage: ^DF^
     Route: 065
     Dates: start: 20061120
  3. PHENYTOIN [Concomitant]
     Indication: GRAND MAL CONVULSION
     Dosage: DAILY DOSE 450 MG
     Route: 042
     Dates: start: 20061215, end: 20061221
  4. NEOSIDANTOINA [Suspect]
     Indication: GRAND MAL CONVULSION
     Route: 048
     Dates: start: 20061222, end: 20061230

REACTIONS (1)
  - ANAEMIA [None]
